FAERS Safety Report 9886875 (Version 3)
Quarter: 2014Q2

REPORT INFORMATION
  Report Type: Spontaneous
  Country: US (occurrence: US)
  Receive Date: 20140210
  Receipt Date: 20140507
  Transmission Date: 20141212
  Serious: Yes (Hospitalization)
  Sender: FDA-Public Use
  Company Number: US-009507513-1402USA002390

PATIENT
  Age: 63 Year
  Sex: Female
  Weight: 87.98 kg

DRUGS (2)
  1. DULERA [Suspect]
     Indication: ASTHMA
     Dosage: 2 PUFFS TWICE A DAY
     Route: 055
     Dates: start: 201202, end: 201312
  2. DULERA [Suspect]
     Indication: SARCOIDOSIS
     Dosage: 1 PUFF TWICE DAILY
     Route: 055
     Dates: start: 201312

REACTIONS (2)
  - Gastrointestinal haemorrhage [Unknown]
  - Laryngitis [Recovered/Resolved]
